FAERS Safety Report 15202337 (Version 3)
Quarter: 2018Q4

REPORT INFORMATION
  Report Type: Spontaneous
  Country: DE (occurrence: DE)
  Receive Date: 20180726
  Receipt Date: 20181009
  Transmission Date: 20190204
  Serious: Yes (Other)
  Sender: FDA-Public Use
  Company Number: PHHY2018DE051980

PATIENT
  Age: 60 Year
  Sex: Female

DRUGS (5)
  1. PHENPROCOUMON [Suspect]
     Active Substance: PHENPROCOUMON
     Indication: ANTICOAGULANT THERAPY
     Route: 048
  2. ACETYLSALICYLIC ACID [Suspect]
     Active Substance: ASPIRIN
     Indication: ANTIPLATELET THERAPY
     Route: 065
  3. APIXABAN [Suspect]
     Active Substance: APIXABAN
     Indication: ANTICOAGULANT THERAPY
     Dosage: UNK
     Route: 048
  4. PHENPROCOUMON [Suspect]
     Active Substance: PHENPROCOUMON
     Indication: VASCULAR STENT THROMBOSIS
  5. ACETYLSALICYLIC ACID [Suspect]
     Active Substance: ASPIRIN
     Indication: VASCULAR STENT THROMBOSIS

REACTIONS (5)
  - Asthenia [Unknown]
  - Sinus tachycardia [Recovered/Resolved]
  - Anaemia [Recovered/Resolved]
  - Rectal haemorrhage [Recovered/Resolved]
  - Lower gastrointestinal haemorrhage [Unknown]
